FAERS Safety Report 7333629-1 (Version None)
Quarter: 2011Q1

REPORT INFORMATION
  Report Type: 
  Country: None (occurrence: None)
  Receive Date: 20110305
  Receipt Date: 20110228
  Transmission Date: 20110831
  Serious: Yes (Hospitalization)
  Sender: FDA-Public Use
  Company Number: US-AMGEN-USASP2011011477

PATIENT
  Age: 63 Year
  Sex: Female
  Weight: 69.4 kg

DRUGS (8)
  1. MAGNESIUM OXIDE [Concomitant]
  2. ASA [Concomitant]
  3. ATENOLOL [Concomitant]
  4. NEULASTA [Suspect]
     Indication: PRODUCT USED FOR UNKNOWN INDICATION
     Dosage: UNK
     Dates: start: 20110127
  5. JANUVIA [Concomitant]
  6. PACLITAXEL [Suspect]
     Dosage: 80 MG/M2, UNK
     Dates: start: 20100810, end: 20110126
  7. SYNTHROID [Concomitant]
  8. PAXIL [Concomitant]

REACTIONS (3)
  - FATIGUE [None]
  - RASH [None]
  - PYREXIA [None]
